FAERS Safety Report 4835961-X (Version None)
Quarter: 2005Q4

REPORT INFORMATION
  Report Type: 
  Country: None (occurrence: None)
  Receive Date: 20051118
  Receipt Date: 20051104
  Transmission Date: 20060501
  Serious: Yes (Hospitalization, Other)
  Sender: FDA-Public Use
  Company Number: 430003L05JPN

PATIENT
  Age: 20 Year
  Sex: Female

DRUGS (4)
  1. MITOXANTRONE [Suspect]
     Indication: PERIPHERAL T-CELL LYMPHOMA UNSPECIFIED RECURRENT
     Dosage: INTRAVENOUS
     Route: 042
     Dates: start: 20041101, end: 20050201
  2. IFOSFAMIDE [Suspect]
     Indication: PERIPHERAL T-CELL LYMPHOMA UNSPECIFIED RECURRENT
     Dates: start: 20041101, end: 20050201
  3. PREDNISOLONE /00016201/ [Suspect]
     Indication: PERIPHERAL T-CELL LYMPHOMA UNSPECIFIED RECURRENT
     Dates: start: 20041101, end: 20050201
  4. VINDESINE SULFATE [Suspect]
     Indication: PERIPHERAL T-CELL LYMPHOMA UNSPECIFIED RECURRENT
     Dates: start: 20041101, end: 20050201

REACTIONS (4)
  - CAESAREAN SECTION [None]
  - DRUG EXPOSURE DURING PREGNANCY [None]
  - PNEUMOCYSTIS JIROVECI PNEUMONIA [None]
  - PREMATURE LABOUR [None]
